FAERS Safety Report 8490459 (Version 3)
Quarter: 2013Q2

REPORT INFORMATION
  Report Type: Spontaneous
  Country: US (occurrence: US)
  Receive Date: 20120403
  Receipt Date: 20130523
  Transmission Date: 20140414
  Serious: Yes (Hospitalization, Other)
  Sender: FDA-Public Use
  Company Number: US-BIOGENIDEC-2012BI010492

PATIENT
  Age: 33 Year
  Sex: Female

DRUGS (1)
  1. AVONEX [Suspect]
     Indication: MULTIPLE SCLEROSIS
     Route: 030
     Dates: start: 20120208

REACTIONS (5)
  - Amnesia [Recovered/Resolved]
  - Speech disorder [Recovered/Resolved]
  - Abasia [Recovered/Resolved]
  - Convulsion [Recovered/Resolved]
  - Cognitive disorder [Unknown]
